FAERS Safety Report 6044368-1 (Version None)
Quarter: 2009Q1

REPORT INFORMATION
  Report Type: 
  Country: None (occurrence: None)
  Receive Date: 20090115
  Receipt Date: 20090115
  Transmission Date: 20090719
  Serious: Yes (Disabling)
  Sender: FDA-Public Use
  Company Number: None

PATIENT
  Sex: Female

DRUGS (9)
  1. AREDIA [Suspect]
     Indication: MULTIPLE MYELOMA
     Dosage: 90 MG MONTHLY IV
     Route: 042
     Dates: start: 19970601, end: 20041001
  2. SYNTHROID [Concomitant]
  3. TOPROL-XL [Concomitant]
  4. COZAAR [Concomitant]
  5. NORVASC [Concomitant]
  6. LASIX [Concomitant]
  7. CATAPRES [Concomitant]
  8. PROTONIX [Concomitant]
  9. STEM CELL TRANSPLANT [Concomitant]

REACTIONS (7)
  - BONE DISORDER [None]
  - DEVICE MIGRATION [None]
  - JAW DISORDER [None]
  - MALOCCLUSION [None]
  - OSTEONECROSIS [None]
  - PURULENCE [None]
  - SECRETION DISCHARGE [None]
